FAERS Safety Report 17190343 (Version 1)
Quarter: 2019Q4

REPORT INFORMATION
  Report Type: Spontaneous
  Country: US (occurrence: US)
  Receive Date: 20191130
  Receipt Date: 20191130
  Transmission Date: 20200122
  Serious: Yes (Hospitalization)
  Sender: FDA-Public Use
  Company Number: None

PATIENT
  Sex: Male
  Weight: 13.4 kg

DRUGS (5)
  1. METHOTREXATE. [Concomitant]
     Active Substance: METHOTREXATE
  2. VINCRISTINE SULFATE. [Suspect]
     Active Substance: VINCRISTINE SULFATE
  3. ONCASPAR [Concomitant]
     Active Substance: PEGASPARGASE
  4. CYTARABINE. [Concomitant]
     Active Substance: CYTARABINE
  5. DEXAMETHASONE. [Concomitant]
     Active Substance: DEXAMETHASONE

REACTIONS (8)
  - Diarrhoea [None]
  - Asthenia [None]
  - Faeces hard [None]
  - Abdominal distension [None]
  - Rectal tenesmus [None]
  - Abdominal pain [None]
  - Treatment noncompliance [None]
  - Fall [None]

NARRATIVE: CASE EVENT DATE: 20191122
